FAERS Safety Report 5291925-6 (Version None)
Quarter: 2007Q2

REPORT INFORMATION
  Report Type: 
  Country: None (occurrence: None)
  Receive Date: 20070403
  Receipt Date: 20070319
  Transmission Date: 20071010
  Serious: Yes (Death)
  Sender: FDA-Public Use
  Company Number: 2001001256-FJ

PATIENT
  Age: 20 Year
  Sex: Male
  Weight: 70 kg

DRUGS (7)
  1. PROGRAF [Suspect]
     Indication: STEM CELL TRANSPLANT
     Dosage: SEE IMAGE
     Dates: start: 19980604, end: 19980621
  2. PROGRAF [Suspect]
     Indication: STEM CELL TRANSPLANT
     Dosage: SEE IMAGE
     Dates: start: 19980709
  3. NEUTROGIN (LENOGRASTIM) INJECTION [Concomitant]
  4. PREDNISOLONE [Concomitant]
  5. CARBENIN (BETAMIPRON, PANIPENEM) INJECTION [Concomitant]
  6. HABEKACIN (ARBEKACIN) INJECTION [Concomitant]
  7. DIFLUCAN [Concomitant]

REACTIONS (9)
  - ADENOVIRUS INFECTION [None]
  - CONVULSION [None]
  - CYSTITIS HAEMORRHAGIC [None]
  - DRUG INEFFECTIVE [None]
  - GRAFT VERSUS HOST DISEASE [None]
  - KIDNEY INFECTION [None]
  - MELAENA [None]
  - PAIN [None]
  - URINE OUTPUT DECREASED [None]
